FAERS Safety Report 4406368-4 (Version None)
Quarter: 2004Q3

REPORT INFORMATION
  Report Type: 
  Country: None (occurrence: None)
  Receive Date: 20040723
  Receipt Date: 20030709
  Transmission Date: 20050211
  Serious: No
  Sender: FDA-Public Use
  Company Number: US-GLAXOSMITHKLINE-A0415872A

PATIENT
  Age: 65 Year
  Sex: Female

DRUGS (6)
  1. AVANDIA [Suspect]
     Dosage: 4MG PER DAY
     Route: 048
     Dates: start: 20030708
  2. LANTUS [Concomitant]
  3. HUMALOG [Concomitant]
  4. SYNTHROID [Concomitant]
  5. PROZAC [Concomitant]
  6. WATER PILL [Concomitant]

REACTIONS (2)
  - BLOOD GLUCOSE DECREASED [None]
  - HYPERGLYCAEMIA [None]
